FAERS Safety Report 23864069 (Version 1)
Quarter: 2024Q2

REPORT INFORMATION
  Report Type: Spontaneous
  Country: US (occurrence: US)
  Receive Date: 20240516
  Receipt Date: 20240516
  Transmission Date: 20240716
  Serious: No
  Sender: FDA-Public Use
  Company Number: US-TEVA-VS-3192905

PATIENT
  Sex: Female

DRUGS (17)
  1. FIORICET [Suspect]
     Active Substance: ACETAMINOPHEN\BUTALBITAL\CAFFEINE
     Indication: Product used for unknown indication
     Dosage: UNKNOWN
     Route: 065
  2. ARTHROTEC [Concomitant]
     Active Substance: DICLOFENAC SODIUM\MISOPROSTOL
  3. SULFAMETHOXAZOLE\TRIMETHOPRIM [Concomitant]
     Active Substance: SULFAMETHOXAZOLE\TRIMETHOPRIM
  4. CLARITIN [Concomitant]
     Active Substance: LORATADINE
  5. AVELOX [Concomitant]
     Active Substance: MOXIFLOXACIN HYDROCHLORIDE
  6. TEGRETOL [Concomitant]
     Active Substance: CARBAMAZEPINE
  7. CLINORIL [Concomitant]
     Active Substance: SULINDAC
  8. DARVOCET [Concomitant]
     Active Substance: ACETAMINOPHEN\PROPOXYPHENE HYDROCHLORIDE
  9. ZANAFLEX [Concomitant]
     Active Substance: TIZANIDINE HYDROCHLORIDE
  10. MECLOMEN [Concomitant]
     Active Substance: MECLOFENAMATE SODIUM
  11. PAMELOR [Concomitant]
     Active Substance: NORTRIPTYLINE HYDROCHLORIDE
  12. NEURONTIN [Concomitant]
     Active Substance: GABAPENTIN
  13. RELAFEN [Concomitant]
     Active Substance: NABUMETONE
  14. SOMA [Concomitant]
     Active Substance: CARISOPRODOL
  15. DURAGESIC [Concomitant]
     Active Substance: FENTANYL
  16. ROBAXIN [Concomitant]
     Active Substance: METHOCARBAMOL
  17. DHC PLUS [Concomitant]
     Active Substance: ACETAMINOPHEN\CAFFEINE\DIHYDROCODEINE BITARTRATE

REACTIONS (1)
  - Nausea [Unknown]
